FAERS Safety Report 24247971 (Version 3)
Quarter: 2024Q3

REPORT INFORMATION
  Report Type: Report from Study
  Country: SI (occurrence: SI)
  Receive Date: 20240826
  Receipt Date: 20240923
  Transmission Date: 20241017
  Serious: Yes (Other)
  Sender: NOVARTIS
  Company Number: SI-002147023-NVSC2024SI159137

PATIENT
  Age: 60 Year
  Sex: Male
  Weight: 79 kg

DRUGS (9)
  1. TABRECTA [Suspect]
     Active Substance: CAPMATINIB
     Indication: Non-small cell lung cancer
     Dosage: 400 MG, BID
     Route: 048
     Dates: start: 20240703, end: 20240717
  2. TABRECTA [Suspect]
     Active Substance: CAPMATINIB
     Dosage: 300 MG, BID
     Route: 048
     Dates: start: 20240724, end: 20240807
  3. ACETAMINOPHEN\TRAMADOL [Concomitant]
     Active Substance: ACETAMINOPHEN\TRAMADOL
     Indication: Pain
     Dosage: (75 MG/650MG) 1 DOSAGE FORM, BID (PRIOR 03-JUL-2024)
     Route: 048
  4. METAMIZOLE [Concomitant]
     Active Substance: METAMIZOLE
     Indication: Pain
     Dosage: 500 MG, PRN (PRIOR 03- JUL-2024)
     Route: 048
  5. CHOLECALCIFEROL [Concomitant]
     Active Substance: CHOLECALCIFEROL
     Indication: Product used for unknown indication
     Dosage: 4000 IU/ML 50 DRP, QW (PRIOR 03- JUL-2024)
     Route: 048
  6. BISOPROLOL [Concomitant]
     Active Substance: BISOPROLOL\BISOPROLOL FUMARATE
     Indication: Heart rate abnormal
     Dosage: 1.25 MG, QD (PRIOR 03- JUL-2024)
     Route: 048
  7. ESOMEPRAZOLE [Concomitant]
     Active Substance: ESOMEPRAZOLE
     Indication: Reflux gastritis
     Dosage: 40 MG, QD (PRIOR 03-JUL-2024)
     Route: 048
  8. VITAMIN B COMPLEX [Concomitant]
     Active Substance: CYANOCOBALAMIN\DEXPANTHENOL\NIACINAMIDE\PYRIDOXINE HYDROCHLORIDE\RIBOFLAVIN 5^-PHOSPHATE SODIUM\THIA
     Indication: Product used for unknown indication
     Dosage: 1 DOSAGE FORM, TID (3X1 TABLET)
     Route: 048
     Dates: start: 20240813
  9. QUETIAPINE [Concomitant]
     Active Substance: QUETIAPINE
     Indication: Insomnia
     Dosage: 25 MG
     Route: 048
     Dates: start: 20240807

REACTIONS (4)
  - Hypertransaminasaemia [Recovering/Resolving]
  - Neutropenia [Recovered/Resolved]
  - Platelet count decreased [Recovered/Resolved]
  - Glomerular filtration rate decreased [Recovered/Resolved]

NARRATIVE: CASE EVENT DATE: 20240717
